FAERS Safety Report 9423608 (Version 2)
Quarter: 2013Q3

REPORT INFORMATION
  Report Type: Spontaneous
  Country: CA (occurrence: CA)
  Receive Date: 20130726
  Receipt Date: 20130829
  Transmission Date: 20140515
  Serious: Yes (Other)
  Sender: FDA-Public Use
  Company Number: CA-ASTRAZENECA-2013SE56576

PATIENT
  Age: 1 Month
  Sex: Female
  Weight: 2.8 kg

DRUGS (1)
  1. SYNAGIS [Suspect]
     Route: 030
     Dates: start: 2013

REACTIONS (4)
  - Decreased appetite [Unknown]
  - Haematochezia [Unknown]
  - Lethargy [Unknown]
  - Colitis [Unknown]
